FAERS Safety Report 5389576-8 (Version None)
Quarter: 2007Q3

REPORT INFORMATION
  Report Type: 
  Country: None (occurrence: None)
  Receive Date: 20070717
  Receipt Date: 20070705
  Transmission Date: 20080115
  Serious: Yes (Other)
  Sender: FDA-Public Use
  Company Number: DE-PFIZER INC-2007054949

PATIENT
  Age: 27 Year
  Sex: Male
  Weight: 90 kg

DRUGS (4)
  1. GENOTROPIN [Suspect]
     Indication: HYPOPITUITARISM
     Dosage: DAILY DOSE:.4MG
     Dates: start: 20050202, end: 20070515
  2. HYDROCORTISON [Concomitant]
     Dosage: DAILY DOSE:10MG
     Route: 048
  3. MINIRIN ^AVENTIS PHARMA^ [Concomitant]
     Dosage: DAILY DOSE:20MCG
     Route: 045
     Dates: start: 19890101
  4. LEVOTHYROXINE SODIUM [Concomitant]
     Dosage: DAILY DOSE:100MCG
     Route: 048
     Dates: start: 19920101

REACTIONS (2)
  - CRANIOPHARYNGIOMA [None]
  - NEOPLASM RECURRENCE [None]
